FAERS Safety Report 10436959 (Version 5)
Quarter: 2014Q4

REPORT INFORMATION
  Report Type: Report from Study
  Country: GB (occurrence: GB)
  Receive Date: 20140908
  Receipt Date: 20141020
  Transmission Date: 20150528
  Serious: Yes (Other)
  Sender: FDA-Public Use
  Company Number: GB-ABBVIE-14P-167-1269800-00

PATIENT
  Age: 62 Year
  Sex: Female

DRUGS (2)
  1. STEROIDS [Suspect]
     Active Substance: UNSPECIFIED INGREDIENT
     Indication: PRODUCT USED FOR UNKNOWN INDICATION
     Route: 065
  2. HUMIRA [Suspect]
     Active Substance: ADALIMUMAB
     Indication: RHEUMATOID ARTHRITIS
     Route: 065
     Dates: start: 20140731, end: 20140904

REACTIONS (15)
  - Mood swings [Recovered/Resolved]
  - Malaise [Recovered/Resolved]
  - Presyncope [Recovered/Resolved]
  - Arthralgia [Recovered/Resolved]
  - Injection site pain [Recovered/Resolved]
  - Hyperhidrosis [Recovered/Resolved]
  - Injection site reaction [Recovered/Resolved]
  - Injection site pain [Recovered/Resolved]
  - Neck pain [Recovered/Resolved]
  - Poor quality sleep [Recovered/Resolved]
  - Pain [Recovered/Resolved]
  - Tremor [Recovered/Resolved]
  - Weight increased [Unknown]
  - Malaise [Recovered/Resolved]
  - Injection site pain [Recovered/Resolved]

NARRATIVE: CASE EVENT DATE: 2014
